FAERS Safety Report 7709217-1 (Version None)
Quarter: 2011Q3

REPORT INFORMATION
  Report Type: 
  Country: None (occurrence: None)
  Receive Date: 20110825
  Receipt Date: 20110815
  Transmission Date: 20111222
  Serious: Yes (Hospitalization)
  Sender: FDA-Public Use
  Company Number: US-JNJFOC-20110807488

PATIENT
  Age: 42 Year
  Sex: Female
  Weight: 83.92 kg

DRUGS (5)
  1. BENADRYL [Suspect]
  2. TYLENOL-500 [Suspect]
     Route: 065
  3. TYLENOL-500 [Suspect]
     Indication: PYREXIA
     Route: 065
     Dates: start: 20110727, end: 20110727
  4. BENADRYL [Suspect]
     Indication: URTICARIA
     Dates: start: 20110727
  5. UNKNOWN MEDICATION [Suspect]
     Indication: PRODUCT USED FOR UNKNOWN INDICATION

REACTIONS (3)
  - MATERNAL EXPOSURE DURING PREGNANCY [None]
  - OFF LABEL USE [None]
  - COMA [None]
